FAERS Safety Report 23637859 (Version 2)
Quarter: 2024Q3

REPORT INFORMATION
  Report Type: Spontaneous
  Country: JP (occurrence: JP)
  Receive Date: 20240315
  Receipt Date: 20240701
  Transmission Date: 20241016
  Serious: Yes (Other)
  Sender: INCYTE
  Company Number: JP-002147023-NVSJ2024JP003052

PATIENT

DRUGS (1)
  1. RUXOLITINIB [Suspect]
     Active Substance: RUXOLITINIB
     Indication: Polycythaemia vera
     Dosage: 20 MG
     Route: 048

REACTIONS (2)
  - Blast cell crisis [Recovered/Resolved]
  - Janus kinase 2 mutation [Recovered/Resolved]
